FAERS Safety Report 5369923-3 (Version None)
Quarter: 2007Q2

REPORT INFORMATION
  Report Type: 
  Country: None (occurrence: None)
  Receive Date: 20070621
  Receipt Date: 20070605
  Transmission Date: 20071010
  Serious: Yes (Hospitalization)
  Sender: FDA-Public Use
  Company Number: 157152ISR

PATIENT
  Age: 76 Year
  Sex: Female

DRUGS (2)
  1. CEPHALEXIN [Suspect]
  2. TRIMETHOPRIM [Suspect]
     Dosage: 0.5 DF (2 IN 1 D) ORAL
     Route: 048
     Dates: start: 20070510, end: 20070511

REACTIONS (1)
  - DRUG INTERACTION [None]
